FAERS Safety Report 6898281-8 (Version None)
Quarter: 2010Q3

REPORT INFORMATION
  Report Type: 
  Country: None (occurrence: None)
  Receive Date: 20100802
  Receipt Date: 20071001
  Transmission Date: 20110219
  Serious: No
  Sender: FDA-Public Use
  Company Number: US-PFIZER INC-2007082343

PATIENT
  Age: 17 Year
  Sex: Female

DRUGS (2)
  1. LYRICA [Suspect]
     Indication: ATONIC SEIZURES
     Dates: start: 20070201
  2. LYRICA [Suspect]
     Indication: COMPLEX PARTIAL SEIZURES

REACTIONS (1)
  - WEIGHT INCREASED [None]
